FAERS Safety Report 22975781 (Version 3)
Quarter: 2024Q2

REPORT INFORMATION
  Report Type: Report from Study
  Country: US (occurrence: US)
  Receive Date: 20230925
  Receipt Date: 20240624
  Transmission Date: 20240716
  Serious: Yes (Other)
  Sender: FDA-Public Use
  Company Number: US-ABBVIE-5416929

PATIENT
  Age: 59 Year
  Sex: Female

DRUGS (2)
  1. SKYRIZI [Suspect]
     Active Substance: RISANKIZUMAB-RZAA
     Indication: Psoriasis
     Route: 058
     Dates: start: 20220920
  2. SKYRIZI [Suspect]
     Active Substance: RISANKIZUMAB-RZAA
     Route: 058
     Dates: start: 20230120, end: 202308

REACTIONS (7)
  - Spinal fusion surgery [Recovering/Resolving]
  - Psoriasis [Recovering/Resolving]
  - Dry skin [Unknown]
  - Pain in extremity [Unknown]
  - Procedural pain [Not Recovered/Not Resolved]
  - Osteoarthritis [Unknown]
  - Hypoaesthesia [Not Recovered/Not Resolved]

NARRATIVE: CASE EVENT DATE: 20230821
